FAERS Safety Report 5145679-4 (Version None)
Quarter: 2006Q4

REPORT INFORMATION
  Report Type: 
  Country: None (occurrence: None)
  Receive Date: 20061102
  Receipt Date: 20061011
  Transmission Date: 20070319
  Serious: Yes (Life-Threatening, Hospitalization, Other)
  Sender: FDA-Public Use
  Company Number: 2006SP004220

PATIENT
  Age: 63 Year
  Sex: Female

DRUGS (8)
  1. TEMODAL [Suspect]
     Indication: MALIGNANT GLIOMA
     Dosage: 75 MG/M2
     Dates: start: 20060516, end: 20060703
  2. TEMODAL [Suspect]
     Indication: MALIGNANT GLIOMA
     Dosage: 75 MG/M2
     Dates: start: 20060731, end: 20060901
  3. TRITICUM [Concomitant]
  4. RISIDON [Concomitant]
  5. DEPAKENE [Concomitant]
  6. RADIOTHERAPY [Concomitant]
  7. OMEPRAZOL /00661201/ [Concomitant]
  8. DEXAMETHASONE /00016002/ [Concomitant]

REACTIONS (4)
  - BLOOD DISORDER [None]
  - HYPOCALCAEMIA [None]
  - PANCYTOPENIA [None]
  - PYREXIA [None]
